FAERS Safety Report 25957686 (Version 1)
Quarter: 2025Q4

REPORT INFORMATION
  Report Type: Spontaneous
  Country: US (occurrence: US)
  Receive Date: 20251024
  Receipt Date: 20251024
  Transmission Date: 20260117
  Serious: No
  Sender: PFIZER
  Company Number: US-PFIZER INC-202500209064

PATIENT
  Age: 49 Year
  Sex: Male

DRUGS (1)
  1. IBRANCE [Suspect]
     Active Substance: PALBOCICLIB
     Indication: Breast mass
     Dosage: 125 MG, DAILY, TAKE ONE CAPSULE DAILY

REACTIONS (1)
  - Lymphoedema [Not Recovered/Not Resolved]
